FAERS Safety Report 17836147 (Version 1)
Quarter: 2020Q2

REPORT INFORMATION
  Report Type: Spontaneous
  Country: FR (occurrence: FR)
  Receive Date: 20200528
  Receipt Date: 20200528
  Transmission Date: 20200714
  Serious: Yes (Hospitalization)
  Sender: FDA-Public Use
  Company Number: FR-BAYER-2020-090096

PATIENT
  Age: 84 Year
  Sex: Male
  Weight: 79.7 kg

DRUGS (3)
  1. LEVOFLOXACINE [LEVOFLOXACIN] [Suspect]
     Active Substance: LEVOFLOXACIN
     Indication: OSTEOARTHROPATHY
     Dosage: UNK
     Route: 042
     Dates: start: 201901, end: 20190301
  2. TRIMETHOPRIM + SULFAMETHOXAZOLE [Suspect]
     Active Substance: SULFAMETHOXAZOLE\TRIMETHOPRIM
     Indication: OSTEOARTHROPATHY
     Dosage: UNK
     Route: 015
     Dates: end: 20190228
  3. IZILOX [Suspect]
     Active Substance: MOXIFLOXACIN HYDROCHLORIDE
     Indication: OSTEOARTHROPATHY
     Dosage: UNK
     Route: 042
     Dates: start: 201901

REACTIONS (2)
  - Eosinophilia [Recovered/Resolved]
  - Toxic skin eruption [Recovered/Resolved]

NARRATIVE: CASE EVENT DATE: 20190226
